FAERS Safety Report 5511519-4 (Version None)
Quarter: 2007Q4

REPORT INFORMATION
  Report Type: 
  Country: None (occurrence: None)
  Receive Date: 20071109
  Receipt Date: 20071107
  Transmission Date: 20080405
  Serious: Yes (Life-Threatening)
  Sender: FDA-Public Use
  Company Number: B0494225A

PATIENT
  Age: 2 Year
  Sex: Male
  Weight: 12 kg

DRUGS (3)
  1. AUGMENTIN '125' [Suspect]
     Indication: SKIN GRAFT INFECTION
     Route: 048
     Dates: start: 20071011, end: 20071012
  2. PENICILLIN V [Concomitant]
     Route: 048
  3. FLUCLOXACILLIN [Concomitant]
     Route: 048

REACTIONS (6)
  - CARDIAC ARREST [None]
  - HYPOVOLAEMIA [None]
  - LARYNGEAL OEDEMA [None]
  - LIP SWELLING [None]
  - SWOLLEN TONGUE [None]
  - URTICARIA [None]
